FAERS Safety Report 8875092 (Version 3)
Quarter: 2012Q4

REPORT INFORMATION
  Report Type: 
  Country: US (occurrence: US)
  Receive Date: 20121029
  Receipt Date: 20121206
  Transmission Date: 20130627
  Serious: No
  Sender: FDA-Public Use
  Company Number: US-PFIZER INC-2012268062

PATIENT
  Age: 46 Year
  Sex: Male

DRUGS (1)
  1. EPIPEN [Suspect]
     Dosage: 0.3 mg, UNK
     Dates: start: 20121017

REACTIONS (2)
  - Drug ineffective [Recovered/Resolved]
  - Product quality issue [Recovered/Resolved]
